FAERS Safety Report 10981886 (Version 2)
Quarter: 2015Q2

REPORT INFORMATION
  Report Type: Spontaneous
  Country: LT (occurrence: LT)
  Receive Date: 20150402
  Receipt Date: 20150408
  Transmission Date: 20150821
  Serious: Yes (Other)
  Sender: FDA-Public Use
  Company Number: PHHY2015LT015120

PATIENT
  Age: 41 Year
  Sex: Female

DRUGS (1)
  1. GILENYA [Suspect]
     Active Substance: FINGOLIMOD HYDROCHLORIDE
     Indication: MULTIPLE SCLEROSIS
     Dosage: 0.5 MG, QD
     Route: 065
     Dates: start: 20141006, end: 20150119

REACTIONS (6)
  - White blood cell count decreased [Unknown]
  - Lymphocyte count decreased [Unknown]
  - Muscle spasms [Unknown]
  - Secondary progressive multiple sclerosis [Unknown]
  - Haemoglobin decreased [Unknown]
  - Epistaxis [Unknown]
